FAERS Safety Report 8589443-2 (Version None)
Quarter: 2012Q3

REPORT INFORMATION
  Report Type: 
  Country: None (occurrence: None)
  Receive Date: 20120813
  Receipt Date: 20120808
  Transmission Date: 20120928
  Serious: No
  Sender: FDA-Public Use
  Company Number: US-B.I. PHARMACEUTICALS,INC./RIDGEFIELD-2012-BP-17872BP

PATIENT
  Age: 89 Year
  Sex: Male

DRUGS (3)
  1. SPIRIVA [Concomitant]
     Indication: CHRONIC OBSTRUCTIVE PULMONARY DISEASE
     Dates: start: 20120301
  2. ZANTAC [Suspect]
     Indication: HYPERCHLORHYDRIA
     Dosage: 300 MG
     Route: 048
     Dates: start: 20120801
  3. INSULIN [Concomitant]
     Indication: DIABETES MELLITUS

REACTIONS (1)
  - PRURITUS [None]
